FAERS Safety Report 9198051 (Version 1)
Quarter: 2013Q1

REPORT INFORMATION
  Report Type: Spontaneous
  Country: JP (occurrence: JP)
  Receive Date: 20130328
  Receipt Date: 20130328
  Transmission Date: 20140127
  Serious: Yes (Hospitalization)
  Sender: FDA-Public Use
  Company Number: JP-B.I. PHARMACEUTICALS,INC./RIDGEFIELD-2013-BI-08419NB

PATIENT
  Age: 71 Year
  Sex: Male

DRUGS (1)
  1. SPIRIVA [Suspect]
     Indication: CHRONIC OBSTRUCTIVE PULMONARY DISEASE
     Route: 065

REACTIONS (4)
  - Inguinal hernia [Recovered/Resolved]
  - Dyspnoea [Recovered/Resolved]
  - Inguinal hernia [Not Recovered/Not Resolved]
  - Nasopharyngitis [Recovered/Resolved]
